FAERS Safety Report 18637043 (Version 1)
Quarter: 2020Q4

REPORT INFORMATION
  Report Type: Spontaneous
  Country: US (occurrence: US)
  Receive Date: 20201219
  Receipt Date: 20201219
  Transmission Date: 20210114
  Serious: Yes (Other)
  Sender: FDA-Public Use
  Company Number: US-LUPIN PHARMACEUTICALS INC.-2020-10385

PATIENT
  Age: 9 Year
  Sex: Male

DRUGS (1)
  1. METHYLPHENIDATE. [Suspect]
     Active Substance: METHYLPHENIDATE
     Indication: ATTENTION DEFICIT HYPERACTIVITY DISORDER
     Dosage: 18 MILLIGRAM (OSMOTIC-CONTROLLED RELEASE ORAL DELIVERY SYSTEM; EVERY MORNING)
     Route: 048

REACTIONS (2)
  - Acute psychosis [Recovered/Resolved]
  - Idiosyncratic drug reaction [Recovered/Resolved]
